FAERS Safety Report 5165728-7 (Version None)
Quarter: 2006Q4

REPORT INFORMATION
  Report Type: 
  Country: None (occurrence: None)
  Receive Date: 20061128
  Receipt Date: 20061120
  Transmission Date: 20070319
  Serious: Yes (Other)
  Sender: FDA-Public Use
  Company Number: FR-2006-015572

PATIENT
  Sex: Male

DRUGS (2)
  1. CAMPATH [Suspect]
     Indication: CHRONIC LYMPHOCYTIC LEUKAEMIA
     Dosage: 3X/WEEK, SUBCUTANEOUS
     Route: 058
     Dates: start: 20050701, end: 20060201
  2. CAMPATH [Suspect]
     Indication: CHRONIC LYMPHOCYTIC LEUKAEMIA
     Dosage: 3X/WEEK, SUBCUTANEOUS
     Route: 058
     Dates: start: 20060201

REACTIONS (2)
  - AMYOTROPHY [None]
  - GAIT DISTURBANCE [None]
